FAERS Safety Report 24000569 (Version 5)
Quarter: 2024Q4

REPORT INFORMATION
  Report Type: Spontaneous
  Country: US (occurrence: US)
  Receive Date: 20240621
  Receipt Date: 20241114
  Transmission Date: 20250114
  Serious: No
  Sender: BRISTOL-MYERS SQUIBB COMPANY
  Company Number: US-BRISTOL-MYERS SQUIBB COMPANY-2024-099914

PATIENT
  Age: 61 Year
  Sex: Female

DRUGS (3)
  1. SPRYCEL [Suspect]
     Active Substance: DASATINIB
     Indication: Chronic myeloid leukaemia
     Route: 048
     Dates: start: 202405
  2. SPRYCEL [Suspect]
     Active Substance: DASATINIB
     Dosage: STRENGTH- 50MG
     Route: 048
     Dates: start: 202405
  3. SPRYCEL [Suspect]
     Active Substance: DASATINIB
     Dosage: STRENGTH- 50MG
     Route: 048
     Dates: start: 202404

REACTIONS (11)
  - Swelling face [Unknown]
  - Rash [Unknown]
  - Abdominal discomfort [Unknown]
  - Headache [Unknown]
  - Myalgia [Recovering/Resolving]
  - Bone pain [Recovering/Resolving]
  - Insomnia [Recovering/Resolving]
  - Alopecia [Recovering/Resolving]
  - Abdominal distension [Unknown]
  - Fatigue [Unknown]
  - Oedema [Unknown]

NARRATIVE: CASE EVENT DATE: 20240801
